FAERS Safety Report 11258032 (Version 1)
Quarter: 2015Q2

REPORT INFORMATION
  Report Type: Spontaneous
  Country: US (occurrence: None)
  Receive Date: 20150618
  Receipt Date: 20150618
  Transmission Date: 20150821
  Serious: Yes (Hospitalization)
  Sender: FDA-Public Use
  Company Number: 1713747-2015-99986

PATIENT
  Age: 31 Year
  Sex: Female

DRUGS (18)
  1. CLONIDINE. [Concomitant]
     Active Substance: CLONIDINE
  2. HYDRALAZINE [Concomitant]
     Active Substance: HYDRALAZINE HYDROCHLORIDE
  3. LIBERTY CYCLER SET [Concomitant]
     Active Substance: DEVICE
  4. CARVEDILOL. [Concomitant]
     Active Substance: CARVEDILOL
  5. MEN-PHOR [Concomitant]
     Active Substance: CAMPHOR (SYNTHETIC)\MENTHOL
  6. NEPHROCAPS [Concomitant]
     Active Substance: ASCORBIC ACID\BIOTIN\CYANOCOBALAMIN\FOLIC ACID\NIACIN\PANTOTHENIC ACID\PYRIDOXINE\RIBOFLAVIN\THIAMINE
  7. PHOSLO [Concomitant]
     Active Substance: CALCIUM ACETATE
  8. VENOFER [Concomitant]
     Active Substance: IRON SUCROSE
  9. GABAPENTIN. [Concomitant]
     Active Substance: GABAPENTIN
  10. PROAIR HFA [Concomitant]
     Active Substance: ALBUTEROL SULFATE
  11. DELFLEX [Suspect]
     Active Substance: CALCIUM CHLORIDE\DEXTROSE MONOHYDRATE\MAGNESIUM CHLORIDE\SODIUM CHLORIDE\SODIUM LACTATE
     Indication: CHRONIC KIDNEY DISEASE
     Dosage: PERITONEAL DIALYSIS
     Dates: start: 20141221
  12. LIBERTY CYCLER [Concomitant]
     Active Substance: DEVICE
  13. AMIODIPINE [Concomitant]
  14. ALBUTEROL. [Concomitant]
     Active Substance: ALBUTEROL
  15. LACTULOSE. [Concomitant]
     Active Substance: LACTULOSE
  16. LOSARTAN [Concomitant]
     Active Substance: LOSARTAN
  17. PANTOPRAZOLE [Concomitant]
     Active Substance: PANTOPRAZOLE SODIUM
  18. RENVELA [Concomitant]
     Active Substance: SEVELAMER CARBONATE

REACTIONS (1)
  - Peritonitis [None]

NARRATIVE: CASE EVENT DATE: 20141221
